FAERS Safety Report 6127366-9 (Version None)
Quarter: 2009Q1

REPORT INFORMATION
  Report Type: 
  Country: None (occurrence: None)
  Receive Date: 20090319
  Receipt Date: 20090303
  Transmission Date: 20090719
  Serious: Yes (Hospitalization)
  Sender: FDA-Public Use
  Company Number: 2009S1003836

PATIENT
  Age: 64 Year
  Sex: Male

DRUGS (2)
  1. ENALAPRIL MALEATE [Suspect]
     Indication: HYPERTENSION
     Dosage: 10 MG; DAILY ORAL
     Route: 048
  2. BISOPROLOL FUMARATE [Concomitant]

REACTIONS (1)
  - HEPATOTOXICITY [None]
